FAERS Safety Report 7440526 (Version 7)
Quarter: 2013Q1

REPORT INFORMATION
  Report Type: Spontaneous
  Country: US (occurrence: US)
  Receive Date: 20100629
  Receipt Date: 20130225
  Transmission Date: 20140127
  Serious: Yes (Other)
  Sender: FDA-Public Use
  Company Number: US-BIOGENIDEC-2010BI020868

PATIENT
  Age: 61 Year
  Sex: Female
  Weight: 76 kg

DRUGS (3)
  1. TYSABRI [Suspect]
     Indication: MULTIPLE SCLEROSIS
     Route: 042
     Dates: start: 20100125, end: 201005
  2. TYSABRI [Suspect]
     Indication: MULTIPLE SCLEROSIS
     Route: 042
     Dates: start: 200808
  3. PROVIGIL [Concomitant]

REACTIONS (5)
  - Influenza [Unknown]
  - Oropharyngeal squamous cell carcinoma [Unknown]
  - Diabetes mellitus [Unknown]
  - Hypoacusis [Not Recovered/Not Resolved]
  - Multiple sclerosis relapse [Recovered/Resolved]
